FAERS Safety Report 9089305 (Version 1)
Quarter: 2013Q1

REPORT INFORMATION
  Report Type: Report from Study
  Country: US (occurrence: US)
  Receive Date: 20130131
  Receipt Date: 20130131
  Transmission Date: 20140127
  Serious: No
  Sender: FDA-Public Use
  Company Number: US-ABBOTT-12P-163-0994527-00

PATIENT
  Age: 36 Year
  Sex: Female

DRUGS (5)
  1. HUMIRA [Suspect]
     Indication: RHEUMATOID ARTHRITIS
     Dates: start: 20120923
  2. NEURONTIN [Concomitant]
     Indication: NEUROPATHY PERIPHERAL
     Dosage: 200MG IN THE MORNING 500MG AT NIGHT
  3. ZOLOFT [Concomitant]
     Indication: ANXIETY
     Dosage: 50MG DAILY
  4. DICYCLOMINE [Concomitant]
     Indication: IRRITABLE BOWEL SYNDROME
  5. TRAMADOL [Concomitant]
     Indication: PAIN

REACTIONS (6)
  - Pruritus generalised [Not Recovered/Not Resolved]
  - Injection site swelling [Unknown]
  - Urticaria [Unknown]
  - Injection site erythema [Unknown]
  - Injection site warmth [Unknown]
  - Injection site reaction [Unknown]
